FAERS Safety Report 15762944 (Version 2)
Quarter: 2019Q1

REPORT INFORMATION
  Report Type: Report from Study
  Country: US (occurrence: US)
  Receive Date: 20181226
  Receipt Date: 20190128
  Transmission Date: 20190417
  Serious: Yes (Other)
  Sender: FDA-Public Use
  Company Number: US-ARIAD-2017US007702

PATIENT
  Sex: Male
  Weight: 63.49 kg

DRUGS (1)
  1. PONATINIB [Suspect]
     Active Substance: PONATINIB
     Indication: CHRONIC MYELOID LEUKAEMIA
     Dosage: 30 MG, QD
     Route: 048
     Dates: start: 20170111

REACTIONS (7)
  - Insomnia [Unknown]
  - Neuropathy peripheral [Recovering/Resolving]
  - Neoplasm progression [Unknown]
  - Nausea [Unknown]
  - Hepatitis B [Unknown]
  - Fatigue [Unknown]
  - Decreased appetite [Unknown]
